FAERS Safety Report 23537053 (Version 3)
Quarter: 2024Q1

REPORT INFORMATION
  Report Type: Report from Study
  Country: DE (occurrence: DE)
  Receive Date: 20240219
  Receipt Date: 20240306
  Transmission Date: 20240410
  Serious: Yes (Hospitalization)
  Sender: FDA-Public Use
  Company Number: DE-ABBVIE-5639657

PATIENT
  Age: 68 Year
  Sex: Male

DRUGS (6)
  1. CARBIDOPA\LEVODOPA [Suspect]
     Active Substance: CARBIDOPA\LEVODOPA
     Indication: Parkinson^s disease
     Dosage: MD: 8.0 ML; CRD: 5.3 ML/H; ED: 2.0 ML
     Route: 050
     Dates: start: 20210722
  2. CARBIDOPA\LEVODOPA [Suspect]
     Active Substance: CARBIDOPA\LEVODOPA
  3. ELIQUIS [Concomitant]
     Active Substance: APIXABAN
     Indication: Product used for unknown indication
     Route: 048
  4. NEXIUM [Concomitant]
     Active Substance: ESOMEPRAZOLE MAGNESIUM
     Indication: Product used for unknown indication
     Route: 048
  5. TORSEMIDE [Concomitant]
     Active Substance: TORSEMIDE
     Indication: Product used for unknown indication
     Route: 048
  6. FRESUBIN ORIGINAL FIBRE [Concomitant]
     Indication: Product used for unknown indication
     Dosage: TIME INTERVAL: 0.33333333 DAYS

REACTIONS (15)
  - Pleural effusion [Recovering/Resolving]
  - Incorrect route of product administration [Recovered/Resolved]
  - Device dislocation [Unknown]
  - Dysphagia [Not Recovered/Not Resolved]
  - Wrong technique in device usage process [Recovered/Resolved]
  - Pneumonia [Unknown]
  - Device dislocation [Recovered/Resolved]
  - Dizziness [Unknown]
  - Leukopenia [Unknown]
  - Empyema [Unknown]
  - Pain [Recovering/Resolving]
  - Pneumonia aspiration [Recovering/Resolving]
  - Gallbladder enlargement [Unknown]
  - Splenomegaly [Unknown]
  - Somnolence [Unknown]

NARRATIVE: CASE EVENT DATE: 20240125
